FAERS Safety Report 24702755 (Version 2)
Quarter: 2024Q4

REPORT INFORMATION
  Report Type: Spontaneous
  Country: JP (occurrence: JP)
  Receive Date: 20241205
  Receipt Date: 20241220
  Transmission Date: 20250114
  Serious: Yes (Hospitalization)
  Sender: Unknown Manufacturer
  Company Number: JP-MTPC-MTPC2024-0024360

PATIENT
  Age: 51 Year
  Sex: Female

DRUGS (3)
  1. EDARAVONE [Suspect]
     Active Substance: EDARAVONE
     Indication: MELAS syndrome
     Route: 041
  2. ARGININE [Concomitant]
     Active Substance: ARGININE
     Indication: MELAS syndrome
     Dosage: UNK
     Route: 041
  3. LEVETIRACETAM [Concomitant]
     Active Substance: LEVETIRACETAM
     Indication: MELAS syndrome
     Route: 041

REACTIONS (2)
  - Intestinal pseudo-obstruction [Recovered/Resolved]
  - Off label use [Unknown]
